FAERS Safety Report 5005039-3 (Version None)
Quarter: 2006Q2

REPORT INFORMATION
  Report Type: 
  Country: None (occurrence: None)
  Receive Date: 20060516
  Receipt Date: 20060516
  Transmission Date: 20061013
  Serious: Yes (Other)
  Sender: FDA-Public Use
  Company Number: None

PATIENT
  Age: 42 Year
  Sex: Female
  Weight: 63.5036 kg

DRUGS (1)
  1. ACCUTANE [Suspect]
     Indication: ACNE
     Dosage: 40 MG ONCE DAILY  PO
     Route: 048
     Dates: start: 20060414, end: 20060430

REACTIONS (6)
  - ABDOMINAL PAIN [None]
  - DEFAECATION URGENCY [None]
  - DIARRHOEA [None]
  - HAEMATOCHEZIA [None]
  - MUCOUS STOOLS [None]
  - WHITE BLOOD CELL COUNT INCREASED [None]
